FAERS Safety Report 6446518-1 (Version None)
Quarter: 2009Q4

REPORT INFORMATION
  Report Type: 
  Country: None (occurrence: None)
  Receive Date: 20091116
  Receipt Date: 20091102
  Transmission Date: 20100525
  Serious: Yes (Other)
  Sender: FDA-Public Use
  Company Number: PHEH2009US14955

PATIENT
  Age: 62 Year
  Sex: Female

DRUGS (5)
  1. VISUDYNE [Suspect]
     Dates: start: 20090928
  2. METOPROLOL [Concomitant]
  3. NORVASC [Concomitant]
  4. ALTACE [Concomitant]
  5. CRESTOR [Concomitant]

REACTIONS (1)
  - ARRHYTHMIA [None]
